FAERS Safety Report 7272145-2 (Version None)
Quarter: 2011Q1

REPORT INFORMATION
  Report Type: 
  Country: None (occurrence: None)
  Receive Date: 20110203
  Receipt Date: 20110119
  Transmission Date: 20110831
  Serious: Yes (Hospitalization)
  Sender: FDA-Public Use
  Company Number: PHHY2011CA07016

PATIENT
  Sex: Female

DRUGS (1)
  1. ACLASTA [Suspect]
     Dosage: 5 MG, ONCE YEAR
     Route: 042
     Dates: start: 20090711

REACTIONS (3)
  - APRAXIA [None]
  - CEREBROVASCULAR ACCIDENT [None]
  - HYPOACUSIS [None]
